FAERS Safety Report 6017021-8 (Version None)
Quarter: 2008Q4

REPORT INFORMATION
  Report Type: 
  Country: None (occurrence: None)
  Receive Date: 20081223
  Receipt Date: 20081208
  Transmission Date: 20090506
  Serious: Yes (Other)
  Sender: FDA-Public Use
  Company Number: NL-ROCHE-601831

PATIENT
  Sex: Female
  Weight: 74 kg

DRUGS (2)
  1. XELODA [Suspect]
     Dosage: FREQUENCY: 3500 MG DAILY IN A TWO WEEKS ON AND 1 WEEK OFF SCHEDULE
     Route: 048
     Dates: start: 20080902, end: 20081020
  2. FRAXIPARIN [Concomitant]

REACTIONS (1)
  - OPTIC ISCHAEMIC NEUROPATHY [None]
